FAERS Safety Report 9136622 (Version 1)
Quarter: 2013Q1

REPORT INFORMATION
  Report Type: Report from Study
  Country: US (occurrence: US)
  Receive Date: 20130304
  Receipt Date: 20130304
  Transmission Date: 20140127
  Serious: No
  Sender: FDA-Public Use
  Company Number: US-ABBOTT-12P-163-0929257-00

PATIENT
  Age: 72 Year
  Sex: Male
  Weight: 90.8 kg

DRUGS (3)
  1. ANDROGEL 1% [Suspect]
     Indication: BLOOD TESTOSTERONE DECREASED
     Dosage: 4 PUMPS PER DAY
     Dates: start: 2010, end: 2011
  2. ANDROGEL 1% [Suspect]
     Dosage: 3 PUMPS PER DAY
     Dates: start: 2011
  3. FLAVINOIDS [Concomitant]
     Indication: SUPPLEMENTATION THERAPY

REACTIONS (4)
  - Blood testosterone decreased [Unknown]
  - Libido decreased [Unknown]
  - Fatigue [Unknown]
  - Acne [Recovered/Resolved]
